FAERS Safety Report 6347446-2 (Version None)
Quarter: 2009Q3

REPORT INFORMATION
  Report Type: 
  Country: None (occurrence: None)
  Receive Date: 20090910
  Receipt Date: 20090521
  Transmission Date: 20100115
  Serious: No
  Sender: FDA-Public Use
  Company Number: US-BAYER-200921493NA

PATIENT
  Age: 83 Year
  Sex: Male

DRUGS (4)
  1. CAMPATH [Suspect]
     Indication: NON-HODGKIN'S LYMPHOMA
     Dosage: AS USED: 3 MG
     Route: 058
     Dates: start: 20090518, end: 20090518
  2. CAMPATH [Suspect]
     Dosage: AS USED: 10 MG
     Route: 058
     Dates: start: 20090521
  3. BENADRYL [Concomitant]
     Indication: PREMEDICATION
     Route: 042
  4. CLARITIN [Concomitant]
     Indication: PREMEDICATION

REACTIONS (1)
  - INJECTION SITE RASH [None]
